FAERS Safety Report 9492794 (Version 1)
Quarter: 2013Q3

REPORT INFORMATION
  Report Type: Spontaneous
  Country: US (occurrence: US)
  Receive Date: 20130830
  Receipt Date: 20130830
  Transmission Date: 20140515
  Serious: Yes (Hospitalization, Other)
  Sender: FDA-Public Use
  Company Number: US-PFIZER INC-2013247314

PATIENT
  Sex: Female

DRUGS (2)
  1. GEODON [Suspect]
     Dosage: 40 MG, UNK
     Dates: start: 2012, end: 201210
  2. THORAZINE [Suspect]
     Dosage: UNK

REACTIONS (9)
  - Asthma [Unknown]
  - Cardiac disorder [Unknown]
  - Hypoxia [Unknown]
  - Myocardial infarction [Unknown]
  - Hidradenitis [Not Recovered/Not Resolved]
  - Sweat gland disorder [Unknown]
  - Chest pain [Unknown]
  - Somnolence [Unknown]
  - Weight increased [Unknown]
